FAERS Safety Report 7763513-0 (Version None)
Quarter: 2011Q3

REPORT INFORMATION
  Report Type: 
  Country: None (occurrence: None)
  Receive Date: 20110920
  Receipt Date: 20110914
  Transmission Date: 20111222
  Serious: Yes (Other)
  Sender: FDA-Public Use
  Company Number: US-AMGEN-USASP2011045133

PATIENT
  Sex: Male
  Weight: 107.94 kg

DRUGS (26)
  1. RED BLOOD CELLS [Concomitant]
     Dosage: 2 UNIT, UNK
     Route: 042
  2. PREDNISONE [Concomitant]
     Indication: IDIOPATHIC THROMBOCYTOPENIC PURPURA
  3. POLYGAM S/D [Concomitant]
     Indication: IDIOPATHIC THROMBOCYTOPENIC PURPURA
     Dosage: 80 UNK, UNK
     Route: 042
  4. VINCRISTINE [Concomitant]
     Indication: IDIOPATHIC THROMBOCYTOPENIC PURPURA
     Dosage: 2 MG, UNK
     Route: 042
  5. SIMVASTATIN [Concomitant]
     Dosage: 20 MG, QD
  6. PREVACID [Concomitant]
     Dosage: 30 UNK, QD
  7. LASIX [Concomitant]
     Dosage: 20 MG, UNK
     Route: 042
  8. DECADRON [Concomitant]
     Dosage: 8 MG, UNK
     Route: 042
  9. ZANTAC [Concomitant]
     Dosage: 50 MG, UNK
     Route: 042
  10. NPLATE [Suspect]
     Indication: IDIOPATHIC THROMBOCYTOPENIC PURPURA
     Dosage: 108 MUG, QWK
     Route: 058
     Dates: start: 20081111
  11. PLATELETS [Concomitant]
     Indication: IDIOPATHIC THROMBOCYTOPENIC PURPURA
  12. PNEUMOVAX VACCIN [Concomitant]
     Dosage: 0.5 ML, ONE TIME DOSE
     Route: 030
  13. LOSARTAN POTASSIUM [Concomitant]
     Dosage: 50 MG, QD
  14. HYDROCHLOROTHIAZIDE [Concomitant]
     Dosage: 50 MG, QD
  15. TYLENOL (CAPLET) [Concomitant]
     Dosage: 650 MG, UNK
     Route: 048
  16. SYNTHROID [Concomitant]
     Dosage: 0.75 MG, QD
  17. BENADRYL [Concomitant]
     Dosage: 25 MG, UNK
     Route: 042
  18. DYAZIDE [Concomitant]
     Dosage: 1 UNK, UNK
  19. RITUXAN [Concomitant]
     Indication: IDIOPATHIC THROMBOCYTOPENIC PURPURA
     Dosage: 840 MG, UNK
     Route: 042
  20. DIFLUCAN [Concomitant]
     Dosage: 20 MG, QWK
  21. CORTICOSTEROIDS [Concomitant]
     Indication: IDIOPATHIC THROMBOCYTOPENIC PURPURA
  22. SOLU-MEDROL [Concomitant]
     Dosage: 40 MG, UNK
     Route: 042
  23. SOLU-CORTEF [Concomitant]
     Dosage: 100 MG, UNK
     Route: 042
  24. ACETAMINOPHEN AND HYDROCODONE BITARTRATE [Concomitant]
     Indication: PAIN
     Dosage: UNK UNK, PRN
  25. KYTRIL [Concomitant]
     Dosage: 1 MG, UNK
     Route: 042
  26. HEPARIN [Concomitant]
     Dosage: 1500 UNK, UNK

REACTIONS (13)
  - OSTEOMYELITIS [None]
  - THERAPEUTIC RESPONSE DECREASED [None]
  - ANAL CANDIDIASIS [None]
  - STASIS DERMATITIS [None]
  - ORAL CANDIDIASIS [None]
  - ANAEMIA [None]
  - DYSPHAGIA [None]
  - EVANS SYNDROME [None]
  - DIABETES MELLITUS [None]
  - ECCHYMOSIS [None]
  - OEDEMA PERIPHERAL [None]
  - DECUBITUS ULCER [None]
  - PETECHIAE [None]
